FAERS Safety Report 19199015 (Version 1)
Quarter: 2021Q2

REPORT INFORMATION
  Report Type: Report from Study
  Country: AU (occurrence: AU)
  Receive Date: 20210430
  Receipt Date: 20210430
  Transmission Date: 20210717
  Serious: Yes (Life-Threatening, Other)
  Sender: FDA-Public Use
  Company Number: AU-PFIZER INC-2021442155

PATIENT
  Age: 58 Year

DRUGS (2)
  1. PROPOFOL. [Suspect]
     Active Substance: PROPOFOL
     Indication: GENERAL ANAESTHESIA
     Dosage: 50 INDUCTION DOSE
     Route: 007
  2. PROPOFOL. [Suspect]
     Active Substance: PROPOFOL
     Indication: CHOLECYSTECTOMY

REACTIONS (3)
  - Congestive cardiomyopathy [Unknown]
  - Anaesthetic complication pulmonary [Unknown]
  - Chronic left ventricular failure [Unknown]
